FAERS Safety Report 6805487-2 (Version None)
Quarter: 2010Q2

REPORT INFORMATION
  Report Type: 
  Country: None (occurrence: None)
  Receive Date: 20100628
  Receipt Date: 20071219
  Transmission Date: 20101027
  Serious: No
  Sender: FDA-Public Use
  Company Number: US-PFIZER INC-2007107431

PATIENT
  Age: 68 Year
  Sex: Female
  Weight: 81.818 kg

DRUGS (3)
  1. CADUET [Suspect]
     Indication: BLOOD CHOLESTEROL INCREASED
     Dosage: 2.5/10MG
     Dates: start: 20070501
  2. CADUET [Suspect]
     Indication: HYPERTENSION
  3. ALL OTHER THERAPEUTIC PRODUCTS [Concomitant]

REACTIONS (4)
  - BLOOD GLUCOSE INCREASED [None]
  - MEDICATION ERROR [None]
  - PHOTOPHOBIA [None]
  - RASH [None]
